FAERS Safety Report 4276064-5 (Version None)
Quarter: 2004Q1

REPORT INFORMATION
  Report Type: 
  Country: None (occurrence: None)
  Receive Date: 20040121
  Receipt Date: 20030728
  Transmission Date: 20041129
  Serious: No
  Sender: FDA-Public Use
  Company Number: US-GLAXOSMITHKLINE-A0419331A

PATIENT
  Age: 50 Year
  Sex: Male

DRUGS (6)
  1. VALTREX [Suspect]
     Dosage: 500MG PER DAY
     Route: 048
     Dates: start: 20030209
  2. LIPITOR [Concomitant]
  3. PRILOSEC [Concomitant]
  4. FLOMAX [Concomitant]
  5. VITAMIN CAP [Concomitant]
  6. ASPIRIN [Concomitant]

REACTIONS (2)
  - SKIN ULCER [None]
  - TINEA CRURIS [None]
